FAERS Safety Report 4309324-X (Version None)
Quarter: 2004Q1

REPORT INFORMATION
  Report Type: 
  Country: None (occurrence: None)
  Receive Date: 20040302
  Receipt Date: 20040218
  Transmission Date: 20041129
  Serious: Yes (Hospitalization)
  Sender: FDA-Public Use
  Company Number: AU-GLAXOSMITHKLINE-B0323707A

PATIENT
  Age: 64 Year
  Sex: Female

DRUGS (2)
  1. AVANDIA [Suspect]
     Dosage: 4MG PER DAY
     Route: 048
     Dates: start: 20031101
  2. INSULIN INJECTION (NAME UNKNOWN) [Concomitant]

REACTIONS (3)
  - DELUSION [None]
  - MANIA [None]
  - MENTAL STATUS CHANGES [None]
